FAERS Safety Report 18080071 (Version 1)
Quarter: 2020Q3

REPORT INFORMATION
  Report Type: Report from Study
  Country: US (occurrence: US)
  Receive Date: 20200728
  Receipt Date: 20200728
  Transmission Date: 20201103
  Serious: No
  Sender: FDA-Public Use
  Company Number: NVSC2020US208285

PATIENT
  Sex: Male

DRUGS (1)
  1. ENTRESTO [Suspect]
     Active Substance: SACUBITRIL\VALSARTAN
     Indication: PRODUCT USED FOR UNKNOWN INDICATION
     Dosage: STARTED TAKING ENTRESTO APPROX 2 MONTHS AGO, 1/2 OF A TABLET TWICE A DAY OF THE 24/26MG TABLET PER H
     Route: 048

REACTIONS (1)
  - Wrong technique in product usage process [Unknown]
